FAERS Safety Report 20292546 (Version 2)
Quarter: 2022Q1

REPORT INFORMATION
  Report Type: Spontaneous
  Country: US (occurrence: US)
  Receive Date: 20220104
  Receipt Date: 20220113
  Transmission Date: 20220423
  Serious: Yes (Life-Threatening)
  Sender: FDA-Public Use
  Company Number: US-ELI_LILLY_AND_COMPANY-US202201000332

PATIENT
  Age: 41 Year
  Sex: Female

DRUGS (3)
  1. ETESEVIMAB [Suspect]
     Active Substance: ETESEVIMAB
     Indication: COVID-19
     Dosage: 1400 MG, SINGLE
     Route: 041
     Dates: start: 20211231, end: 20211231
  2. BAMLANIVIMAB [Suspect]
     Active Substance: BAMLANIVIMAB
     Indication: COVID-19
     Dosage: 700 MG, SINGLE
     Route: 041
     Dates: start: 20211231, end: 20211231
  3. TYLENOL [Concomitant]
     Active Substance: ACETAMINOPHEN
     Dosage: 25 MG, UNKNOWN
     Route: 065
     Dates: start: 20211231

REACTIONS (2)
  - Infusion related reaction [Recovered/Resolved]
  - Anaphylactic reaction [Recovered/Resolved]

NARRATIVE: CASE EVENT DATE: 20211231
